FAERS Safety Report 14813977 (Version 2)
Quarter: 2018Q4

REPORT INFORMATION
  Report Type: Spontaneous
  Country: FR (occurrence: FR)
  Receive Date: 20180426
  Receipt Date: 20181024
  Transmission Date: 20190204
  Serious: Yes (Other)
  Sender: FDA-Public Use
  Company Number: FR-MERCK KGAA-2046585

PATIENT
  Age: 42 Year
  Sex: Female

DRUGS (1)
  1. EUTHYROX [Suspect]
     Active Substance: LEVOTHYROXINE SODIUM
     Indication: HYPOTHYROIDISM
     Dates: end: 2017

REACTIONS (16)
  - Hypersomnia [Recovered/Resolved]
  - C-reactive protein increased [None]
  - Gastrointestinal disorder [None]
  - Peripheral swelling [None]
  - Emotional distress [None]
  - Personal relationship issue [None]
  - Blood thyroid stimulating hormone increased [None]
  - Mood altered [None]
  - Asthenia [Recovered/Resolved]
  - Angina pectoris [None]
  - Fatigue [None]
  - Limb discomfort [None]
  - Social problem [None]
  - Dizziness [None]
  - Burning sensation [None]
  - Muscle spasms [None]

NARRATIVE: CASE EVENT DATE: 20170731
